FAERS Safety Report 23429342 (Version 1)
Quarter: 2024Q1

REPORT INFORMATION
  Report Type: Other
  Country: US (occurrence: US)
  Receive Date: 20240122
  Receipt Date: 20240122
  Transmission Date: 20240410
  Serious: Yes (Other)
  Sender: FDA-Public Use
  Company Number: US-UROVANT SCIENCES GMBH-202401-URV-000053

PATIENT

DRUGS (2)
  1. GEMTESA [Suspect]
     Active Substance: VIBEGRON
     Indication: Product used for unknown indication
     Dosage: UNK, QD
     Route: 065
  2. GEMTESA [Suspect]
     Active Substance: VIBEGRON
     Dosage: UNK, QD
     Route: 065

REACTIONS (7)
  - Angina pectoris [Unknown]
  - Palpitations [Unknown]
  - Off label use [Unknown]
  - Headache [Unknown]
  - Nausea [Unknown]
  - Urinary hesitation [Unknown]
  - Blood pressure increased [Unknown]
